FAERS Safety Report 14375962 (Version 1)
Quarter: 2018Q1

REPORT INFORMATION
  Report Type: Spontaneous
  Country: US (occurrence: US)
  Receive Date: 20180111
  Receipt Date: 20180111
  Transmission Date: 20180509
  Serious: No
  Sender: FDA-Public Use
  Company Number: US-OSMOTICA_PHARMACEUTICAL_US_LLC-POI0573201700035

PATIENT
  Age: 66 Year
  Sex: Female

DRUGS (3)
  1. NIFEDIPINE EXTENDED-RELEASE TABLETS [Suspect]
     Active Substance: NIFEDIPINE
     Indication: HYPERTENSION
     Dates: start: 201705, end: 20170517
  2. LOSARTAN. [Concomitant]
     Active Substance: LOSARTAN
  3. NIFEDIPINE EXTENDED-RELEASE TABLETS [Suspect]
     Active Substance: NIFEDIPINE
     Dosage: HALF OF ONE 60 MG TABLET
     Dates: start: 20170530, end: 20170530

REACTIONS (8)
  - Vomiting [Recovered/Resolved]
  - Drug ineffective [Recovered/Resolved]
  - Arthralgia [Recovered/Resolved]
  - Wrong technique in product usage process [Recovered/Resolved]
  - Liver tenderness [Recovered/Resolved]
  - Nausea [Recovered/Resolved]
  - Fatigue [Recovered/Resolved]
  - Bone pain [Recovered/Resolved]

NARRATIVE: CASE EVENT DATE: 20170517
